FAERS Safety Report 19048434 (Version 1)
Quarter: 2021Q1

REPORT INFORMATION
  Report Type: Spontaneous
  Country: US (occurrence: US)
  Receive Date: 20210323
  Receipt Date: 20210323
  Transmission Date: 20210420
  Serious: No
  Sender: FDA-Public Use
  Company Number: US-GALDERMA-US2020052948

PATIENT
  Sex: Female

DRUGS (1)
  1. CLOBETASOL PROPIONATE (CLOBETASOL PROPIONATE) SHAMPOO, 0.05% [Suspect]
     Active Substance: CLOBETASOL PROPIONATE
     Indication: PRODUCT USED FOR UNKNOWN INDICATION
     Dosage: 0.05%
     Route: 061

REACTIONS (5)
  - Drug ineffective [Unknown]
  - Skin irritation [Unknown]
  - Alopecia [Unknown]
  - Pruritus [Unknown]
  - Condition aggravated [Unknown]
